FAERS Safety Report 19517699 (Version 1)
Quarter: 2021Q3

REPORT INFORMATION
  Report Type: Report from Study
  Country: FR (occurrence: FR)
  Receive Date: 20210712
  Receipt Date: 20210712
  Transmission Date: 20211014
  Serious: Yes (Hospitalization)
  Sender: FDA-Public Use
  Company Number: FR-ADDMEDICA-2021000062

PATIENT
  Age: 10 Year
  Sex: Male

DRUGS (2)
  1. SIKLOS [Suspect]
     Active Substance: HYDROXYUREA
     Route: 048
     Dates: start: 2021
  2. SIKLOS [Suspect]
     Active Substance: HYDROXYUREA
     Route: 048
     Dates: end: 2021

REACTIONS (1)
  - Hypersplenism [Recovered/Resolved]

NARRATIVE: CASE EVENT DATE: 20210128
